FAERS Safety Report 9867741 (Version 1)
Quarter: 2014Q1

REPORT INFORMATION
  Report Type: Spontaneous
  Country: US (occurrence: US)
  Receive Date: 20140204
  Receipt Date: 20140204
  Transmission Date: 20141002
  Serious: Yes (Other)
  Sender: FDA-Public Use
  Company Number: US-FRI-1000053323

PATIENT
  Sex: Male

DRUGS (3)
  1. BYSTOLIC [Suspect]
     Indication: HYPERTENSION
     Dosage: 20 MG
     Dates: start: 20100713
  2. EXFORGE [Suspect]
     Indication: HYPERTENSION
     Dates: end: 2013
  3. EXFORGE [Suspect]
     Dates: start: 2013

REACTIONS (1)
  - Blood pressure increased [Recovered/Resolved]
